FAERS Safety Report 13439027 (Version 1)
Quarter: 2017Q2

REPORT INFORMATION
  Report Type: Spontaneous
  Country: US (occurrence: US)
  Receive Date: 20170413
  Receipt Date: 20170413
  Transmission Date: 20170830
  Serious: No
  Sender: FDA-Public Use
  Company Number: US-ROCHE-1277549

PATIENT
  Sex: Female

DRUGS (1)
  1. XENICAL [Suspect]
     Active Substance: ORLISTAT
     Indication: OBESITY
     Route: 048

REACTIONS (2)
  - Product quality issue [Unknown]
  - Urine odour abnormal [Not Recovered/Not Resolved]
